FAERS Safety Report 8425705-7 (Version None)
Quarter: 2012Q2

REPORT INFORMATION
  Report Type: 
  Country: None (occurrence: None)
  Receive Date: 20120611
  Receipt Date: 20120607
  Transmission Date: 20120825
  Serious: Yes (Death, Hospitalization)
  Sender: FDA-Public Use
  Company Number: PHHY2012FR047944

PATIENT
  Sex: Female
  Weight: 52 kg

DRUGS (4)
  1. EVEROLIMUS [Suspect]
     Indication: RENAL CANCER METASTATIC
     Dosage: 10 MG, DAILY
     Route: 048
     Dates: start: 20111010
  2. ESOMEPRAZOLE [Concomitant]
     Indication: GASTROOESOPHAGEAL REFLUX DISEASE
     Dosage: 20 MG, DAILY
     Dates: start: 20111101
  3. LEVOTHYROXINE SODIUM [Concomitant]
     Indication: HYPOTENSION
     Dosage: 25 MG, DAILY
     Dates: start: 20110928
  4. OXYCONTIN [Concomitant]
     Dosage: 20 MG, BID
     Route: 048

REACTIONS (6)
  - GENERAL PHYSICAL HEALTH DETERIORATION [None]
  - NEOPLASM MALIGNANT [None]
  - DIARRHOEA [None]
  - DYSGEUSIA [None]
  - ASTHENIA [None]
  - NEOPLASM PROGRESSION [None]
